FAERS Safety Report 8665033 (Version 3)
Quarter: 2018Q4

REPORT INFORMATION
  Report Type: Spontaneous
  Country: FR (occurrence: FR)
  Receive Date: 20120716
  Receipt Date: 20181112
  Transmission Date: 20190205
  Serious: Yes (Hospitalization, Other)
  Sender: FDA-Public Use
  Company Number: FR-BRISTOL-MYERS SQUIBB COMPANY-16742850

PATIENT
  Age: 35 Year
  Sex: Male

DRUGS (2)
  1. COUMADIN [Suspect]
     Active Substance: WARFARIN SODIUM
     Indication: HYPERCOAGULATION
     Dosage: UNK
     Route: 048
     Dates: start: 201009, end: 20110516
  2. LOVENOX [Suspect]
     Active Substance: ENOXAPARIN SODIUM
     Indication: HYPERCOAGULATION
     Dosage: UNK
     Route: 058
     Dates: start: 20110518

REACTIONS (6)
  - Peritoneal haemorrhage [Recovered/Resolved]
  - Jaundice [Unknown]
  - Ascites [Unknown]
  - Thrombocytopenia [Unknown]
  - Portal vein thrombosis [Unknown]
  - Gastrointestinal haemorrhage [Unknown]

NARRATIVE: CASE EVENT DATE: 2011
